FAERS Safety Report 4967932-7 (Version None)
Quarter: 2006Q2

REPORT INFORMATION
  Report Type: 
  Country: None (occurrence: None)
  Receive Date: 20060410
  Receipt Date: 20060329
  Transmission Date: 20061013
  Serious: Yes (Death)
  Sender: FDA-Public Use
  Company Number: JP-BRISTOL-MYERS SQUIBB COMPANY-13329867

PATIENT
  Age: 47 Year
  Sex: Female

DRUGS (5)
  1. MAXIPIME [Suspect]
     Indication: FEBRILE NEUTROPENIA
     Dates: start: 20050526, end: 20050616
  2. NEUTROGIN [Concomitant]
     Dates: start: 20050526, end: 20050620
  3. DOXORUBICIN HCL [Concomitant]
     Indication: ACUTE LYMPHOCYTIC LEUKAEMIA
     Dates: start: 20050523
  4. CYCLOPHOSPHAMIDE [Concomitant]
     Indication: ACUTE LYMPHOCYTIC LEUKAEMIA
     Dates: start: 20050523
  5. MEROPENEM [Concomitant]
     Dates: start: 20050617

REACTIONS (1)
  - GASTROINTESTINAL HAEMORRHAGE [None]
